FAERS Safety Report 9716850 (Version 1)
Quarter: 2013Q4

REPORT INFORMATION
  Report Type: Spontaneous
  Country: DE (occurrence: DE)
  Receive Date: 20131127
  Receipt Date: 20131127
  Transmission Date: 20140711
  Serious: Yes (Other)
  Sender: FDA-Public Use
  Company Number: DE-MALLINCKRODT-T201304973

PATIENT
  Age: 32 Year
  Sex: Female
  Weight: 85 kg

DRUGS (16)
  1. EXALGO [Suspect]
     Indication: PSORIATIC ARTHROPATHY
     Dosage: 8 MG, 1 IN 1 DAY
     Route: 048
     Dates: start: 20091126, end: 20100115
  2. REMICADE [Suspect]
     Indication: PSORIATIC ARTHROPATHY
     Dosage: 400 MG OR 300-400 MG
     Route: 042
     Dates: start: 20090624, end: 20090624
  3. REMICADE [Suspect]
     Dosage: UNK
     Route: 042
     Dates: start: 20090717, end: 20090717
  4. REMICADE [Suspect]
     Dosage: UNK
     Route: 042
     Dates: start: 20091221, end: 20091221
  5. REMICADE [Suspect]
     Dosage: UNK
     Route: 042
     Dates: start: 20090107, end: 20090107
  6. REMICADE [Suspect]
     Dosage: UNK
     Route: 042
     Dates: start: 20100209, end: 20100209
  7. PARACETAMOL [Suspect]
     Indication: PSORIATIC ARTHROPATHY
     Dosage: 2000 MG, 1 IN 1 DAY
     Route: 048
  8. DIPIDOLOR [Suspect]
     Indication: PSORIATIC ARTHROPATHY
     Dosage: 45 MG, 1 IN 1 DAY
     Route: 048
  9. DICLOFENAC [Suspect]
     Indication: PSORIATIC ARTHROPATHY
     Dosage: 150 MG, 1 IN 1 DAY
     Route: 048
     Dates: start: 20091126, end: 201001
  10. DICLOFENAC [Suspect]
     Dosage: 75 MG, 1 IN 1 DAY
     Route: 048
     Dates: start: 20091126, end: 201001
  11. PREDNISOLONE [Suspect]
     Indication: PSORIATIC ARTHROPATHY
     Dosage: 20 MG, 1 IN 1 DAY
     Route: 065
     Dates: start: 20091126, end: 20100115
  12. PANTOPRAZOLE [Suspect]
     Indication: GASTRITIS PROPHYLAXIS
     Dosage: UNK
     Route: 048
     Dates: start: 20091126, end: 20100322
  13. HYDROCORTISONE [Suspect]
     Indication: PSORIASIS
     Dosage: .25 %, UNK
     Route: 003
     Dates: start: 20091119, end: 20091123
  14. BIFITERAL [Suspect]
     Indication: CONSTIPATION
     Dosage: UNK
     Route: 048
     Dates: start: 20091123, end: 20091130
  15. DOLORMIN [Suspect]
     Indication: MIGRAINE
     Dosage: 2 TABLETS ONLY
     Route: 065
     Dates: start: 200907, end: 200908
  16. FOLIC ACID [Concomitant]
     Indication: PROPHYLAXIS
     Dosage: UNK

REACTIONS (4)
  - Exposure during pregnancy [Recovered/Resolved]
  - Oligohydramnios [None]
  - Psoriatic arthropathy [Unknown]
  - Constipation [Unknown]
